FAERS Safety Report 9207170 (Version 1)
Quarter: 2013Q2

REPORT INFORMATION
  Report Type: Spontaneous
  Country: US (occurrence: US)
  Receive Date: 20130403
  Receipt Date: 20130403
  Transmission Date: 20140414
  Serious: Yes (Disabling, Other)
  Sender: FDA-Public Use
  Company Number: US-BAYER-2013-039617

PATIENT
  Sex: Female

DRUGS (3)
  1. YAZ [Suspect]
     Dosage: UNK
     Dates: start: 201102, end: 20110318
  2. YASMIN [Suspect]
     Dosage: UNK
     Dates: start: 201102, end: 20110318
  3. OCELLA [Suspect]
     Dosage: UNK
     Dates: start: 201102, end: 20110318

REACTIONS (5)
  - Pulmonary embolism [None]
  - Thrombosis [None]
  - Deformity [None]
  - Pain [None]
  - Injury [None]
